FAERS Safety Report 9619422 (Version 1)
Quarter: 2013Q4

REPORT INFORMATION
  Report Type: Spontaneous
  Country: GR (occurrence: GR)
  Receive Date: 20131014
  Receipt Date: 20131014
  Transmission Date: 20140711
  Serious: Yes (Death, Hospitalization, Other)
  Sender: FDA-Public Use
  Company Number: PHHY2013GR112142

PATIENT
  Age: 38 Year
  Sex: Female

DRUGS (1)
  1. DEFEROXAMINE [Suspect]
     Indication: IRON OVERLOAD
     Dosage: UNK
     Dates: start: 1984

REACTIONS (17)
  - Death [Fatal]
  - Coma [Not Recovered/Not Resolved]
  - Blood pressure increased [Unknown]
  - Zygomycosis [Not Recovered/Not Resolved]
  - Blindness [Unknown]
  - Eye swelling [Unknown]
  - Facial pain [Not Recovered/Not Resolved]
  - Pyrexia [Not Recovered/Not Resolved]
  - Sinusitis [Not Recovered/Not Resolved]
  - Blood creatinine increased [Unknown]
  - Hepatitis C [Unknown]
  - Hypothyroidism [Unknown]
  - Hypoparathyroidism [Unknown]
  - Neutropenia [Unknown]
  - Diabetes mellitus [Unknown]
  - Arthritis [Unknown]
  - Drug ineffective [Not Recovered/Not Resolved]
